FAERS Safety Report 5871332-5 (Version None)
Quarter: 2008Q3

REPORT INFORMATION
  Report Type: 
  Country: None (occurrence: None)
  Receive Date: 20080904
  Receipt Date: 20080904
  Transmission Date: 20090109
  Serious: Yes (Hospitalization)
  Sender: FDA-Public Use
  Company Number: None

PATIENT
  Sex: Female

DRUGS (1)
  1. ZOCOR [Suspect]
     Indication: BLOOD CHOLESTEROL INCREASED
     Dosage: 1 TAB BEDTIME

REACTIONS (10)
  - ANOREXIA [None]
  - DISTURBANCE IN ATTENTION [None]
  - FATIGUE [None]
  - GASTRIC DISORDER [None]
  - HEART RATE INCREASED [None]
  - IMPAIRED WORK ABILITY [None]
  - MALAISE [None]
  - MEMORY IMPAIRMENT [None]
  - MUSCULAR WEAKNESS [None]
  - TINNITUS [None]
